FAERS Safety Report 9925954 (Version 2)
Quarter: 2014Q1

REPORT INFORMATION
  Report Type: Spontaneous
  Country: US (occurrence: US)
  Receive Date: 20140226
  Receipt Date: 20140226
  Transmission Date: 20141002
  Serious: No
  Sender: FDA-Public Use
  Company Number: US-BRACCO-009464

PATIENT
  Sex: 0

DRUGS (1)
  1. ISOVUE 370 [Suspect]
     Indication: DIAGNOSTIC PROCEDURE

REACTIONS (1)
  - Product deposit [Unknown]
